FAERS Safety Report 7123030-8 (Version None)
Quarter: 2010Q4

REPORT INFORMATION
  Report Type: 
  Country: None (occurrence: None)
  Receive Date: 20101125
  Receipt Date: 20101115
  Transmission Date: 20110411
  Serious: Yes (Hospitalization, Other)
  Sender: FDA-Public Use
  Company Number: US-AMGEN-USASP2010005246

PATIENT

DRUGS (2)
  1. ENBREL [Suspect]
     Indication: PSORIATIC ARTHROPATHY
     Dosage: UNK
  2. ENBREL [Suspect]
     Dosage: UNK
     Route: 058

REACTIONS (3)
  - HEPATITIS TOXIC [None]
  - PSORIATIC ARTHROPATHY [None]
  - TRANSAMINASES INCREASED [None]
